FAERS Safety Report 6484930-5 (Version None)
Quarter: 2009Q4

REPORT INFORMATION
  Report Type: 
  Country: None (occurrence: None)
  Receive Date: 20091209
  Receipt Date: 20090605
  Transmission Date: 20100525
  Serious: No
  Sender: FDA-Public Use
  Company Number: US-AMGEN-KDL350451

PATIENT
  Sex: Female

DRUGS (3)
  1. ENBREL [Suspect]
     Indication: RHEUMATOID ARTHRITIS
     Route: 058
     Dates: start: 20090423
  2. METHOTREXATE [Concomitant]
     Route: 048
     Dates: start: 20070901
  3. PLAQUENIL [Concomitant]
     Dates: start: 20050101

REACTIONS (4)
  - ASTHENIA [None]
  - CHILLS [None]
  - CYSTITIS [None]
  - PAIN [None]
